FAERS Safety Report 10672093 (Version 2)
Quarter: 2016Q1

REPORT INFORMATION
  Report Type: Report from Study
  Country: US (occurrence: US)
  Receive Date: 20141223
  Receipt Date: 20160209
  Transmission Date: 20160525
  Serious: Yes (Hospitalization, Other)
  Sender: FDA-Public Use
  Company Number: US-SA-2014SA173488

PATIENT
  Age: 65 Year
  Sex: Female

DRUGS (1)
  1. LANTUS [Suspect]
     Active Substance: INSULIN GLARGINE
     Indication: DIABETES MELLITUS
     Dosage: DOSE:40 UNIT(S)
     Route: 065

REACTIONS (5)
  - Localised infection [Not Recovered/Not Resolved]
  - Toe amputation [Unknown]
  - Thrombosis [Unknown]
  - Poor peripheral circulation [Unknown]
  - Neuropathy peripheral [Unknown]
